FAERS Safety Report 6253534 (Version 4)
Quarter: 2017Q3

REPORT INFORMATION
  Report Type: Spontaneous
  Country: US (occurrence: US)
  Receive Date: 20051230
  Receipt Date: 20170926
  Transmission Date: 20171128
  Serious: Yes (Hospitalization, Other)
  Sender: FDA-Public Use
  Company Number: US-PFIZER INC-2005170916

PATIENT
  Age: 76 Year
  Sex: Male
  Weight: 109 kg

DRUGS (3)
  1. CELEBREX [Suspect]
     Active Substance: CELECOXIB
     Dosage: UNK, AS DIRECTED
  2. VIOXX [Suspect]
     Active Substance: ROFECOXIB
     Dosage: UNK, AS DIRECTED
  3. BEXTRA [Suspect]
     Active Substance: VALDECOXIB
     Indication: BACK PAIN
     Dosage: 10 MG, 1X/DAY (EACH DAY)
     Dates: start: 2002, end: 2003

REACTIONS (2)
  - Myocardial infarction [Unknown]
  - Ischaemic stroke [Unknown]

NARRATIVE: CASE EVENT DATE: 20031112
